FAERS Safety Report 15098087 (Version 1)
Quarter: 2018Q3

REPORT INFORMATION
  Report Type: Spontaneous
  Country: IT (occurrence: IT)
  Receive Date: 20180702
  Receipt Date: 20180702
  Transmission Date: 20181010
  Serious: Yes (Other)
  Sender: FDA-Public Use
  Company Number: IT-TEVA-2018-IT-918382

PATIENT
  Age: 54 Year
  Sex: Male
  Weight: 90 kg

DRUGS (2)
  1. PACLITAXEL. [Suspect]
     Active Substance: PACLITAXEL
     Indication: PANCREATIC CARCINOMA METASTATIC
     Route: 042
     Dates: start: 20171228, end: 20180312
  2. GEMCITABINE [Suspect]
     Active Substance: GEMCITABINE\GEMCITABINE HYDROCHLORIDE
     Indication: PANCREATIC CARCINOMA METASTATIC
     Route: 042
     Dates: start: 20171228, end: 20180312

REACTIONS (2)
  - Transaminases increased [Recovering/Resolving]
  - Hyperbilirubinaemia [Recovering/Resolving]

NARRATIVE: CASE EVENT DATE: 20180102
